FAERS Safety Report 7841512 (Version 3)
Quarter: 2012Q4

REPORT INFORMATION
  Report Type: 
  Country: VE (occurrence: VE)
  Receive Date: 20110304
  Receipt Date: 20121123
  Transmission Date: 20130627
  Serious: Yes (Death, Hospitalization)
  Sender: FDA-Public Use
  Company Number: PHHY2011VE17192

PATIENT
  Sex: Female

DRUGS (5)
  1. ACLASTA [Suspect]
     Indication: OSTEOPOROSIS
     Dosage: UNK mg, UNK
     Route: 042
     Dates: start: 200608
  2. ACLASTA [Suspect]
     Dosage: UNK mg, UNK
     Route: 042
     Dates: start: 200708
  3. ACLASTA [Suspect]
     Dosage: UNK mg, UNK
     Route: 042
     Dates: start: 200808
  4. ACLASTA [Suspect]
     Dosage: UNK mg, UNK
     Route: 042
     Dates: start: 200908
  5. TRITTICO [Concomitant]
     Dosage: UNK UKN, UNK
     Route: 048

REACTIONS (1)
  - Cardiac arrest [Fatal]
